FAERS Safety Report 14825866 (Version 2)
Quarter: 2019Q1

REPORT INFORMATION
  Report Type: Spontaneous
  Country: US (occurrence: US)
  Receive Date: 20180430
  Receipt Date: 20190211
  Transmission Date: 20190417
  Serious: No
  Sender: FDA-Public Use
  Company Number: US-PFIZER INC-2018171238

PATIENT
  Age: 81 Year
  Sex: Female

DRUGS (15)
  1. TOLMETIN [Suspect]
     Active Substance: TOLMETIN
     Dosage: UNK
  2. SENNA [SENNA ALEXANDRINA] [Suspect]
     Active Substance: SENNA LEAF
     Dosage: UNK
  3. TRAMADOL. [Suspect]
     Active Substance: TRAMADOL
     Dosage: UNK
  4. SULFASALAZINE. [Suspect]
     Active Substance: SULFASALAZINE
     Dosage: UNK
  5. TROLEANDOMYCIN. [Suspect]
     Active Substance: TROLEANDOMYCIN
     Dosage: UNK
  6. CODEINE [Suspect]
     Active Substance: CODEINE
     Dosage: UNK
  7. DULOXETINE. [Suspect]
     Active Substance: DULOXETINE
     Dosage: UNK
  8. TELBIVUDINE [Suspect]
     Active Substance: TELBIVUDINE
     Dosage: UNK
  9. LIBRIUM [CHLORDIAZEPOXIDE HYDROCHLORIDE] [Suspect]
     Active Substance: CHLORDIAZEPOXIDE HYDROCHLORIDE
     Dosage: UNK
  10. HALAZEPAM [Suspect]
     Active Substance: HALAZEPAM
     Dosage: UNK
  11. LACTOSE [Suspect]
     Active Substance: LACTOSE
     Dosage: UNK
  12. SULFAMETHOXAZOLE W/TRIMETHOPRIM [Suspect]
     Active Substance: SULFAMETHOXAZOLE\TRIMETHOPRIM
     Dosage: UNK
  13. VICODIN [Suspect]
     Active Substance: ACETAMINOPHEN\HYDROCODONE BITARTRATE
     Dosage: UNK
  14. CIPROFLOXACIN. [Suspect]
     Active Substance: CIPROFLOXACIN
     Dosage: UNK
  15. OPIUM [PAPAVER SOMNIFERUM] [Suspect]
     Active Substance: OPIUM
     Dosage: UNK

REACTIONS (1)
  - Drug hypersensitivity [Unknown]
